FAERS Safety Report 18813098 (Version 1)
Quarter: 2021Q1

REPORT INFORMATION
  Report Type: Spontaneous
  Country: US (occurrence: US)
  Receive Date: 20210131
  Receipt Date: 20210131
  Transmission Date: 20210419
  Serious: No
  Sender: FDA-Public Use
  Company Number: US-ASTRAZENECA-2021A012000

PATIENT
  Sex: Male
  Weight: 108.9 kg

DRUGS (2)
  1. BYDUREON [Suspect]
     Active Substance: EXENATIDE
     Indication: TYPE 2 DIABETES MELLITUS
     Route: 058
     Dates: start: 202012
  2. LANTUS [Concomitant]
     Active Substance: INSULIN GLARGINE
     Dosage: 70 UNITS DAILY

REACTIONS (2)
  - Injection site mass [Not Recovered/Not Resolved]
  - Device leakage [Unknown]
